FAERS Safety Report 4578488-5 (Version None)
Quarter: 2005Q1

REPORT INFORMATION
  Report Type: 
  Country: None (occurrence: None)
  Receive Date: 20050202
  Receipt Date: 20050202
  Transmission Date: 20050727
  Serious: Yes (Hospitalization)
  Sender: FDA-Public Use
  Company Number: None

PATIENT
  Sex: Female
  Weight: 77.8 kg

DRUGS (7)
  1. GEFITINIB 250 MG TABS ASTRAZENECA [Suspect]
     Indication: GLIOBLASTOMA MULTIFORME
     Dosage: 500 MG PO QD
     Route: 048
     Dates: start: 20050114
  2. RAPAMUNE [Suspect]
     Indication: GLIOBLASTOMA MULTIFORME
     Dosage: 5 MG PO QD
     Route: 048
     Dates: start: 20050114
  3. DECADRON [Concomitant]
  4. MAGIC MOUTH WASH WITH LIDOCAINE [Concomitant]
  5. PEPCID [Concomitant]
  6. AMOXICILLIN [Concomitant]
  7. LIDOCAINE/DESITIN/NYSTATION OINTMENT [Concomitant]

REACTIONS (9)
  - DEHYDRATION [None]
  - DIARRHOEA [None]
  - HYPERGLYCAEMIA [None]
  - HYPONATRAEMIA [None]
  - LETHARGY [None]
  - LEUKOPENIA [None]
  - MUCOSAL INFLAMMATION [None]
  - PNEUMONIA [None]
  - VAGINAL LESION [None]
